FAERS Safety Report 7870863-6 (Version None)
Quarter: 2011Q4

REPORT INFORMATION
  Report Type: 
  Country: None (occurrence: None)
  Receive Date: 20111027
  Receipt Date: 20111010
  Transmission Date: 20120403
  Serious: Yes (Other)
  Sender: FDA-Public Use
  Company Number: 2011P1009421

PATIENT
  Age: 65 Year
  Sex: Male

DRUGS (3)
  1. ENOXAPARIN SODIUM [Concomitant]
  2. METHIMAZOLE [Suspect]
     Indication: BASEDOW'S DISEASE
     Dosage: 40 MG;TID;, 40 MG;BID
  3. PROPRANOLOL [Concomitant]

REACTIONS (8)
  - TACHYCARDIA [None]
  - COAGULOPATHY [None]
  - ANAEMIA [None]
  - FATIGUE [None]
  - ACTIVATED PARTIAL THROMBOPLASTIN TIME PROLONGED [None]
  - HAEMORRHAGIC DIATHESIS [None]
  - INTERNATIONAL NORMALISED RATIO INCREASED [None]
  - MELAENA [None]
